FAERS Safety Report 6725413-4 (Version None)
Quarter: 2010Q2

REPORT INFORMATION
  Report Type: 
  Country: None (occurrence: None)
  Receive Date: 20100514
  Receipt Date: 20100430
  Transmission Date: 20101027
  Serious: Yes (Other)
  Sender: FDA-Public Use
  Company Number: US-ELI_LILLY_AND_COMPANY-US201005001909

PATIENT
  Age: 82 Year
  Sex: Male

DRUGS (1)
  1. FORTEO [Suspect]

REACTIONS (4)
  - BLINDNESS [None]
  - BLINDNESS UNILATERAL [None]
  - GENERAL PHYSICAL HEALTH DETERIORATION [None]
  - VASCULITIS [None]
